FAERS Safety Report 23392452 (Version 1)
Quarter: 2024Q1

REPORT INFORMATION
  Report Type: Spontaneous
  Country: None (occurrence: US)
  Receive Date: 20240111
  Receipt Date: 20240111
  Transmission Date: 20240409
  Serious: Yes (Other)
  Sender: FDA-Public Use
  Company Number: US-Central Admixture Pharmacy Services, Inc.-2150915

PATIENT
  Age: 53 Year
  Sex: Male

DRUGS (1)
  1. ANHYDROUS DEXTROSE\CITRIC ACID MONOHYDRATE\POTASSIUM CHLORIDE\SODIUM C [Suspect]
     Active Substance: ANHYDROUS DEXTROSE\CITRIC ACID MONOHYDRATE\POTASSIUM CHLORIDE\SODIUM CHLORIDE\SODIUM PHOSPHATE, MONO
     Indication: Cardiac operation
     Route: 016
     Dates: start: 20231219, end: 20231219

REACTIONS (1)
  - Drug ineffective [Recovered/Resolved]

NARRATIVE: CASE EVENT DATE: 20231219
